FAERS Safety Report 21269078 (Version 4)
Quarter: 2022Q4

REPORT INFORMATION
  Report Type: Spontaneous
  Country: US (occurrence: US)
  Receive Date: 20220830
  Receipt Date: 20221207
  Transmission Date: 20230113
  Serious: Yes (Hospitalization)
  Sender: FDA-Public Use
  Company Number: US-JNJFOC-20220857153

PATIENT
  Age: 32 Year
  Sex: Male
  Weight: 90.800 kg

DRUGS (4)
  1. STELARA [Suspect]
     Active Substance: USTEKINUMAB
     Indication: Crohn^s disease
     Route: 058
     Dates: start: 202206, end: 20220823
  2. STELARA [Suspect]
     Active Substance: USTEKINUMAB
     Dosage: THERAPY START DATE-24/AUG/2022
     Route: 058
     Dates: start: 20220822, end: 20220910
  3. STELARA [Suspect]
     Active Substance: USTEKINUMAB
     Route: 058
  4. PREDNISONE [Concomitant]
     Active Substance: PREDNISONE
     Indication: Crohn^s disease
     Route: 065
     Dates: start: 20211010

REACTIONS (7)
  - Migraine [Unknown]
  - Diplopia [Not Recovered/Not Resolved]
  - Hypertension [Unknown]
  - Vision blurred [Unknown]
  - Asthenopia [Unknown]
  - Swelling [Unknown]
  - Sinus headache [Unknown]

NARRATIVE: CASE EVENT DATE: 20220825
